FAERS Safety Report 25969751 (Version 2)
Quarter: 2025Q4

REPORT INFORMATION
  Report Type: Spontaneous
  Country: JP (occurrence: JP)
  Receive Date: 20251028
  Receipt Date: 20251031
  Transmission Date: 20260118
  Serious: Yes (Hospitalization, Other)
  Sender: BRISTOL-MYERS SQUIBB COMPANY
  Company Number: JP-BRISTOL-MYERS SQUIBB COMPANY-2025-137896

PATIENT
  Age: 8 Decade
  Sex: Male

DRUGS (2)
  1. YERVOY [Suspect]
     Active Substance: IPILIMUMAB
     Indication: Hepatocellular carcinoma
     Route: 041
     Dates: start: 20250919
  2. OPDIVO [Suspect]
     Active Substance: NIVOLUMAB
     Indication: Hepatocellular carcinoma
     Route: 041
     Dates: start: 20250919

REACTIONS (6)
  - Headache [Recovered/Resolved]
  - Pyrexia [Recovered/Resolved]
  - Hepatitis [Recovered/Resolved]
  - Hormone level abnormal [Unknown]
  - Fall [Unknown]
  - Cytokine release syndrome [Not Recovered/Not Resolved]

NARRATIVE: CASE EVENT DATE: 20251006
